FAERS Safety Report 13259402 (Version 2)
Quarter: 2017Q1

REPORT INFORMATION
  Report Type: Spontaneous
  Country: US (occurrence: US)
  Receive Date: 20170222
  Receipt Date: 20170322
  Transmission Date: 20170428
  Serious: No
  Sender: FDA-Public Use
  Company Number: US-PFIZER INC-2017075092

PATIENT
  Age: 66 Year
  Sex: Female

DRUGS (3)
  1. XELJANZ XR [Suspect]
     Active Substance: TOFACITINIB CITRATE
     Indication: RHEUMATOID ARTHRITIS
     Dosage: 11 MG, 1X/DAY
     Dates: end: 20170306
  2. PREDNISONE. [Concomitant]
     Active Substance: PREDNISONE
     Dosage: UNK, 3X/DAY
  3. VITAMIN D [Concomitant]
     Active Substance: CHOLECALCIFEROL
     Dosage: 50000 IU, UNK

REACTIONS (4)
  - Back pain [Recovered/Resolved]
  - Arthralgia [Not Recovered/Not Resolved]
  - Paraesthesia [Recovered/Resolved]
  - Muscular weakness [Unknown]
